FAERS Safety Report 11054753 (Version 1)
Quarter: 2015Q2

REPORT INFORMATION
  Report Type: Spontaneous
  Country: US (occurrence: None)
  Receive Date: 20150421
  Receipt Date: 20150421
  Transmission Date: 20150821
  Serious: Yes (Disabling, Other)
  Sender: FDA-Public Use
  Company Number: None

PATIENT
  Age: 73 Year
  Sex: Female
  Weight: 49.9 kg

DRUGS (19)
  1. SILVER CENTRUM [Concomitant]
  2. FOLIC ACID. [Concomitant]
     Active Substance: FOLIC ACID
  3. COMPLEX B [Concomitant]
     Active Substance: CALCIUM PANTOTHENATE\CYANOCOBALAMIN\NIACINAMIDE\PYRIDOXINE HYDROCHLORIDE\RIBOFLAVIN\THIAMINE MONONITRATE
  4. POTASSIUM [Concomitant]
     Active Substance: POTASSIUM
  5. LIDODERM [Concomitant]
     Active Substance: LIDOCAINE
  6. MELATONIN [Concomitant]
     Active Substance: MELATONIN
  7. SYNTHROID [Concomitant]
     Active Substance: LEVOTHYROXINE SODIUM
  8. COREG [Concomitant]
     Active Substance: CARVEDILOL
  9. VITAMIN D [Concomitant]
     Active Substance: CHOLECALCIFEROL
  10. PREMARIN [Concomitant]
     Active Substance: ESTROGENS, CONJUGATED
  11. VITAMIN E [Concomitant]
     Active Substance: .ALPHA.-TOCOPHEROL
  12. BENADRYL [Concomitant]
     Active Substance: DIPHENHYDRAMINE HYDROCHLORIDE
  13. LEVOFLOXACIN. [Suspect]
     Active Substance: LEVOFLOXACIN
     Indication: WHITE BLOOD CELL COUNT INCREASED
     Dosage: 5 BUT-6 IN BOTTLE? 1X DAILY BY MOUTH
     Route: 048
     Dates: start: 20150115, end: 20150121
  14. ZINC [Concomitant]
     Active Substance: ZINC\ZINC CHLORIDE
  15. NIACIN. [Concomitant]
     Active Substance: NIACIN
  16. MAGNESIUM [Concomitant]
     Active Substance: MAGNESIUM
  17. VITAMIN C [Concomitant]
     Active Substance: ASCORBIC ACID
  18. NORVASC [Concomitant]
     Active Substance: AMLODIPINE BESYLATE
  19. CALCIUM [Concomitant]
     Active Substance: CALCIUM

REACTIONS (8)
  - Gait disturbance [None]
  - Pain [None]
  - Impaired self-care [None]
  - Dysstasia [None]
  - Paraesthesia [None]
  - Muscular weakness [None]
  - Pain in extremity [None]
  - Hypoaesthesia [None]

NARRATIVE: CASE EVENT DATE: 20150120
